FAERS Safety Report 7842942-0 (Version None)
Quarter: 2011Q4

REPORT INFORMATION
  Report Type: 
  Country: None (occurrence: None)
  Receive Date: 20111025
  Receipt Date: 20111013
  Transmission Date: 20120403
  Serious: Yes (Other)
  Sender: FDA-Public Use
  Company Number: CA-ELI_LILLY_AND_COMPANY-CA201110003050

PATIENT
  Sex: Male

DRUGS (7)
  1. ZYPREXA ZYDIS [Suspect]
     Dosage: 15 MG, QD
  2. RISPERIDONE [Concomitant]
  3. ZYPREXA [Suspect]
     Indication: SCHIZOPHRENIA
     Dosage: 17.5 MG, EACH EVENING
  4. ZYPREXA ZYDIS [Suspect]
     Indication: SCHIZOPHRENIA
     Dosage: 10 MG, QD
     Dates: start: 20050922, end: 20090627
  5. PAROXETINE HCL [Concomitant]
  6. ZYPREXA ZYDIS [Suspect]
     Dosage: 17.5 MG, EACH EVENING
     Dates: end: 20090627
  7. PIPORTIL [Concomitant]

REACTIONS (5)
  - HEPATITIS B [None]
  - HYPERGLYCAEMIA [None]
  - HAEMATEMESIS [None]
  - WEIGHT INCREASED [None]
  - BLOOD CHOLESTEROL INCREASED [None]
